FAERS Safety Report 7535168-1 (Version None)
Quarter: 2011Q2

REPORT INFORMATION
  Report Type: 
  Country: None (occurrence: None)
  Receive Date: 20110609
  Receipt Date: 20090401
  Transmission Date: 20111010
  Serious: Yes (Death)
  Sender: FDA-Public Use
  Company Number: PHHO2009IL04351

PATIENT
  Sex: Female

DRUGS (15)
  1. TACROLIMUS [Suspect]
     Dosage: 5 MG, BID
     Route: 048
     Dates: start: 20031114
  2. HEPARIN SODIUM [Concomitant]
  3. ANTI-THYMOCYTE GLOBULIN NOS [Concomitant]
  4. OFLOXACIN [Concomitant]
  5. CYCLOSPORINE [Suspect]
     Indication: RENAL TRANSPLANT
     Dosage: 300 MG, BID
     Route: 048
     Dates: start: 20031103, end: 20031115
  6. METHYLPREDNISOLONE [Suspect]
     Dosage: 125 MG, QD
     Route: 042
     Dates: start: 20031101
  7. MYCOPHENOLATE MEFETIL [Suspect]
     Dosage: 1000 MG, BID
     Route: 048
     Dates: start: 20031101
  8. TACROLIMUS [Suspect]
     Dosage: 6 MG, BID
     Route: 048
  9. AMPICILLIN SODIUM [Concomitant]
  10. CEFTRIAXONE [Concomitant]
  11. METHYLPREDNISOLONE [Suspect]
     Dosage: 500 MG, QD
     Dates: start: 20031107, end: 20031112
  12. INSULIN [Concomitant]
  13. PREDNISONE [Suspect]
     Dosage: 20 MG, QD
     Route: 048
     Dates: start: 20031102
  14. COTRIM [Concomitant]
  15. LEVOFLOXACIN [Concomitant]

REACTIONS (1)
  - DEATH [None]
